FAERS Safety Report 12443443 (Version 1)
Quarter: 2016Q2

REPORT INFORMATION
  Report Type: Spontaneous
  Country: MX (occurrence: MX)
  Receive Date: 20160607
  Receipt Date: 20160607
  Transmission Date: 20160815
  Serious: Yes (Other)
  Sender: FDA-Public Use
  Company Number: MX-BAYER-2016-110008

PATIENT
  Sex: Female
  Weight: 58 kg

DRUGS (5)
  1. METFORMIN [Concomitant]
     Active Substance: METFORMIN HYDROCHLORIDE
     Dosage: 2 DF, QD
  2. ASPIRINA PROTECT [Suspect]
     Active Substance: ASPIRIN
     Indication: CRANIAL NERVE DISORDER
  3. CHLORTALIDONE [Concomitant]
     Active Substance: CHLORTHALIDONE
     Dosage: 25 MG, TIW
  4. ASPIRINA PROTECT [Suspect]
     Active Substance: ASPIRIN
     Indication: CARDIOVASCULAR EVENT PROPHYLAXIS
     Dosage: 100 MG, QD
     Dates: start: 2005, end: 201604
  5. ATORVASTATIN [Concomitant]
     Active Substance: ATORVASTATIN
     Dosage: 1 DF, QD

REACTIONS (7)
  - Contusion [Recovered/Resolved]
  - Contusion [None]
  - Anxiety [Not Recovered/Not Resolved]
  - Thrombocytopenia [Recovered/Resolved]
  - Petechiae [None]
  - Bladder cancer [Not Recovered/Not Resolved]
  - Scratch [None]

NARRATIVE: CASE EVENT DATE: 2010
